FAERS Safety Report 24246574 (Version 12)
Quarter: 2025Q4

REPORT INFORMATION
  Report Type: Spontaneous
  Country: EU (occurrence: EU)
  Receive Date: 20240825
  Receipt Date: 20251017
  Transmission Date: 20260117
  Serious: Yes (Hospitalization, Other)
  Sender: AMGEN
  Company Number: EU-Vifor (International) Inc.-VIT-2024-07388

PATIENT
  Age: 60 Year
  Sex: Male
  Weight: 92.2 kg

DRUGS (17)
  1. TAVNEOS [Suspect]
     Active Substance: AVACOPAN
     Indication: Anti-neutrophil cytoplasmic antibody positive vasculitis
     Dosage: 30,MG,TID
     Route: 048
     Dates: start: 20240208, end: 20240322
  2. PREDNISOLONE [Concomitant]
     Active Substance: PREDNISOLONE
     Indication: Anti-neutrophil cytoplasmic antibody positive vasculitis
     Dosage: INVESTIGATOR DECISION: PREDNISOLONE BURST, CHANGE OF DOSE AFTER 3 DAYS
     Route: 048
     Dates: start: 20240207, end: 20240209
  3. PREDNISOLONE [Concomitant]
     Active Substance: PREDNISOLONE
     Dosage: 90,MG,QD
     Route: 048
     Dates: start: 20240210, end: 20240214
  4. PREDNISOLONE [Concomitant]
     Active Substance: PREDNISOLONE
     Dosage: 50,MG,QD
     Route: 048
     Dates: start: 20240215, end: 20240220
  5. PREDNISOLONE [Concomitant]
     Active Substance: PREDNISOLONE
     Dosage: 40,MG,QD
     Route: 048
     Dates: start: 20240221, end: 20240315
  6. PREDNISOLONE [Concomitant]
     Active Substance: PREDNISOLONE
     Dosage: 30,MG,QD
     Route: 048
     Dates: start: 20240316, end: 20240402
  7. PREDNISOLONE [Concomitant]
     Active Substance: PREDNISOLONE
     Dosage: 20,MG,QD
     Route: 048
     Dates: start: 20240403, end: 20240407
  8. PREDNISOLONE [Concomitant]
     Active Substance: PREDNISOLONE
     Dosage: 20,MG,QD
     Route: 048
     Dates: start: 20240408, end: 20240414
  9. PREDNISOLONE [Concomitant]
     Active Substance: PREDNISOLONE
     Dosage: 15,MG,QD
     Route: 048
     Dates: start: 20240415, end: 20240421
  10. PREDNISOLONE [Concomitant]
     Active Substance: PREDNISOLONE
     Dosage: 10,MG,QD
     Route: 048
     Dates: start: 20240422, end: 20240428
  11. PREDNISOLONE [Concomitant]
     Active Substance: PREDNISOLONE
     Dosage: 5,MG,QD
     Route: 048
     Dates: start: 20240429
  12. PREDNISOLONE [Concomitant]
     Active Substance: PREDNISOLONE
     Dosage: UNK
     Route: 065
  13. CYCLOPHOSPHAMIDE [Concomitant]
     Active Substance: CYCLOPHOSPHAMIDE
     Indication: Anti-neutrophil cytoplasmic antibody positive vasculitis
     Dosage: COMPLETION OF PLANNED COURSE
     Route: 040
     Dates: start: 20240209, end: 20240221
  14. RITUXIMAB [Concomitant]
     Active Substance: RITUXIMAB
     Indication: Anti-neutrophil cytoplasmic antibody positive vasculitis
     Dosage: COMPLETION OF PLANNED COURSE, SINGLE IV INFUSION
     Route: 040
     Dates: start: 20240209, end: 20240209
  15. RITUXIMAB [Concomitant]
     Active Substance: RITUXIMAB
     Dosage: COMPLETION OF PLANNED COURSE, SINGLE IV INFUSION
     Route: 040
     Dates: start: 20240221, end: 20240221
  16. RITUXIMAB [Concomitant]
     Active Substance: RITUXIMAB
     Dosage: COMPLETION OF PLANNED COURSE, SINGLE IV INFUSION
     Route: 040
     Dates: start: 20240306, end: 20240306
  17. RITUXIMAB [Concomitant]
     Active Substance: RITUXIMAB
     Dosage: COMPLETION OF PLANNED COURSE, SINGLE IV INFUSION
     Route: 040
     Dates: start: 20250311, end: 20250311

REACTIONS (9)
  - Cytomegalovirus infection reactivation [Recovered/Resolved]
  - Pneumonia [Recovered/Resolved]
  - Respiratory failure [Recovered/Resolved]
  - Dyspnoea [Recovered/Resolved]
  - Enterococcal bacteraemia [Recovered/Resolved]
  - Intracranial aneurysm [Not Recovered/Not Resolved]
  - Chronic kidney disease [Not Recovered/Not Resolved]
  - White blood cell count decreased [Recovered/Resolved]
  - Urinary tract infection [Recovered/Resolved]

NARRATIVE: CASE EVENT DATE: 20240210
